FAERS Safety Report 18012412 (Version 1)
Quarter: 2020Q3

REPORT INFORMATION
  Report Type: Spontaneous
  Country: CA (occurrence: CA)
  Receive Date: 20200713
  Receipt Date: 20200713
  Transmission Date: 20201103
  Serious: Yes (Hospitalization)
  Sender: FDA-Public Use
  Company Number: CA-TEVA-2020-CA-1798756

PATIENT
  Age: 52 Year
  Sex: Female

DRUGS (26)
  1. CLONAZEPAM. [Suspect]
     Active Substance: CLONAZEPAM
     Indication: HYPOMANIA
     Route: 048
  2. ACETAMINOPHEN. [Suspect]
     Active Substance: ACETAMINOPHEN
     Indication: PAIN IN EXTREMITY
     Route: 048
  3. TRAZODONE [Suspect]
     Active Substance: TRAZODONE HYDROCHLORIDE
     Indication: DEPRESSION
     Route: 048
  4. OLANZAPINE. [Suspect]
     Active Substance: OLANZAPINE
     Indication: PSYCHOTIC DISORDER
     Dosage: 12.5 MILLIGRAM DAILY;
     Route: 048
  5. OLANZAPINE. [Suspect]
     Active Substance: OLANZAPINE
     Dosage: 5 MILLIGRAM DAILY;
     Route: 048
  6. RISPERIDONE. [Suspect]
     Active Substance: RISPERIDONE
     Indication: PSYCHOTIC DISORDER
     Dosage: 3 MILLIGRAM DAILY;
     Route: 048
  7. CALCIUM CARBONATE. [Concomitant]
     Active Substance: CALCIUM CARBONATE
  8. LACTULOSE. [Concomitant]
     Active Substance: LACTULOSE
  9. PROCYCLIDINE HCL [Suspect]
     Active Substance: PROCYCLIDINE HYDROCHLORIDE
     Indication: MUSCULOSKELETAL STIFFNESS
  10. BENADRYL [Concomitant]
     Active Substance: DIPHENHYDRAMINE HYDROCHLORIDE
  11. BISACODYL. [Concomitant]
     Active Substance: BISACODYL
  12. IMODIUM [Concomitant]
     Active Substance: LOPERAMIDE HYDROCHLORIDE
  13. KALETRA [Concomitant]
     Active Substance: LOPINAVIR\RITONAVIR
  14. QUETIAPINE. [Suspect]
     Active Substance: QUETIAPINE
     Indication: PSYCHOTIC DISORDER
     Dosage: 50 MILLIGRAM DAILY;
     Route: 048
  15. DIAZEPAM. [Suspect]
     Active Substance: DIAZEPAM
     Dosage: 1500 MILLIGRAM DAILY;
     Route: 048
  16. PROCYCLIDINE HCL [Suspect]
     Active Substance: PROCYCLIDINE HYDROCHLORIDE
     Indication: PROPHYLAXIS
     Dosage: 2.5 MILLIGRAM DAILY;
     Route: 048
  17. CHLORAL HYDRATE [Concomitant]
     Active Substance: CHLORAL HYDRATE
  18. NYSTATIN. [Concomitant]
     Active Substance: NYSTATIN
  19. SERTRALINE [Concomitant]
     Active Substance: SERTRALINE HYDROCHLORIDE
  20. T?20 [Concomitant]
     Active Substance: ENFUVIRTIDE
  21. 3TC [Concomitant]
     Active Substance: LAMIVUDINE
  22. APTIVUS [Suspect]
     Active Substance: TIPRANAVIR
     Indication: HIV INFECTION
     Dosage: 500 MILLIGRAM DAILY;
     Route: 048
  23. DIAZEPAM. [Suspect]
     Active Substance: DIAZEPAM
     Indication: DEPRESSION
     Dosage: 500 MILLIGRAM DAILY;
     Route: 048
  24. DIAZEPAM. [Suspect]
     Active Substance: DIAZEPAM
     Route: 048
  25. TEGRETOL [Suspect]
     Active Substance: CARBAMAZEPINE
     Indication: HYPOMANIA
     Dosage: 400 MILLIGRAM DAILY;
     Route: 048
  26. LITHIUM. [Concomitant]
     Active Substance: LITHIUM

REACTIONS (12)
  - Hepatic enzyme increased [Unknown]
  - Hypomania [Unknown]
  - Vomiting [Unknown]
  - Condition aggravated [Unknown]
  - Jaundice cholestatic [Unknown]
  - Psychotic disorder [Unknown]
  - Schizophrenia [Unknown]
  - Blood bilirubin increased [Unknown]
  - Hepatotoxicity [Unknown]
  - Nausea [Unknown]
  - Pneumonia [Unknown]
  - Cholelithiasis [Unknown]
